FAERS Safety Report 12406435 (Version 2)
Quarter: 2016Q4

REPORT INFORMATION
  Report Type: Spontaneous
  Country: IT (occurrence: IT)
  Receive Date: 20160526
  Receipt Date: 20161021
  Transmission Date: 20170207
  Serious: Yes (Other)
  Sender: FDA-Public Use
  Company Number: IT-JNJFOC-20160516109

PATIENT

DRUGS (1)
  1. IBRUTINIB [Suspect]
     Active Substance: IBRUTINIB
     Indication: CHRONIC LYMPHOCYTIC LEUKAEMIA
     Route: 048

REACTIONS (6)
  - Rectal haemorrhage [Unknown]
  - Skin haemorrhage [Unknown]
  - Platelet aggregation abnormal [Unknown]
  - Contusion [Unknown]
  - Petechiae [Unknown]
  - Conjunctival haemorrhage [Unknown]
